FAERS Safety Report 4385637-0 (Version None)
Quarter: 2004Q2

REPORT INFORMATION
  Report Type: 
  Country: None (occurrence: None)
  Receive Date: 20040622
  Receipt Date: 20040609
  Transmission Date: 20050107
  Serious: Yes (Hospitalization)
  Sender: FDA-Public Use
  Company Number: 04P-013-0258919-00

PATIENT
  Age: 56 Year
  Sex: Male
  Weight: 85 kg

DRUGS (9)
  1. MERIDIA [Suspect]
     Indication: OBESITY
     Dosage: ORAL
     Route: 048
     Dates: start: 20030604, end: 20040103
  2. DILTGAREM RETINOL [Concomitant]
  3. PRAVASTATIN [Concomitant]
  4. OMEPRAZOLE [Concomitant]
  5. RANITIDINE [Concomitant]
  6. DOMPERIDONE [Concomitant]
  7. CRESTOR [Concomitant]
  8. ASPIRIN [Concomitant]
  9. TILDIEM RETARD [Concomitant]

REACTIONS (4)
  - GASTRIC ULCER [None]
  - GASTRITIS [None]
  - VASCULITIS GASTROINTESTINAL [None]
  - VASCULITIS NECROTISING [None]
